FAERS Safety Report 16200425 (Version 2)
Quarter: 2019Q2

REPORT INFORMATION
  Report Type: Spontaneous
  Country: BR (occurrence: BR)
  Receive Date: 20190416
  Receipt Date: 20190417
  Transmission Date: 20190711
  Serious: Yes (Death, Other)
  Sender: FDA-Public Use
  Company Number: BR-ROCHE-2292539

PATIENT
  Age: 70 Year
  Sex: Female

DRUGS (1)
  1. ACTILYSE [Suspect]
     Active Substance: ALTEPLASE
     Indication: ISCHAEMIC STROKE
     Route: 065
     Dates: start: 20190324, end: 20190324

REACTIONS (9)
  - Back pain [Unknown]
  - Depressed level of consciousness [Not Recovered/Not Resolved]
  - Cardio-respiratory arrest [Fatal]
  - Abdominal pain upper [Unknown]
  - Internal haemorrhage [Fatal]
  - Hypotension [Not Recovered/Not Resolved]
  - Hyperhidrosis [Unknown]
  - Hypovolaemic shock [Fatal]
  - Mouth haemorrhage [Recovered/Resolved]

NARRATIVE: CASE EVENT DATE: 20190324
